FAERS Safety Report 5885531-X (Version None)
Quarter: 2008Q3

REPORT INFORMATION
  Report Type: 
  Country: None (occurrence: None)
  Receive Date: 20080916
  Receipt Date: 20080916
  Transmission Date: 20090109
  Serious: Yes (Other)
  Sender: FDA-Public Use
  Company Number: DE-WYE-G02171508

PATIENT
  Age: 27 Year
  Sex: Female

DRUGS (1)
  1. IBUPROFEN [Suspect]
     Dosage: 3 DOSAGE FORMS

REACTIONS (2)
  - BLOOD CREATINE INCREASED [None]
  - RENAL FAILURE ACUTE [None]
